FAERS Safety Report 8283224-5 (Version None)
Quarter: 2012Q2

REPORT INFORMATION
  Report Type: 
  Country: None (occurrence: None)
  Receive Date: 20120413
  Receipt Date: 20120410
  Transmission Date: 20120825
  Serious: Yes (Hospitalization)
  Sender: FDA-Public Use
  Company Number: US-MERCK-1003USA03760

PATIENT
  Sex: Female

DRUGS (1)
  1. FOSAMAX [Suspect]
     Route: 065
     Dates: start: 20090101, end: 20090101

REACTIONS (7)
  - ABDOMINAL PAIN [None]
  - CONSTIPATION [None]
  - ARTHRALGIA [None]
  - SEPSIS [None]
  - WEIGHT DECREASED [None]
  - GASTROINTESTINAL DISORDER [None]
  - BARRETT'S OESOPHAGUS [None]
